FAERS Safety Report 4325156-0 (Version None)
Quarter: 2004Q1

REPORT INFORMATION
  Report Type: 
  Country: None (occurrence: None)
  Receive Date: 20040326
  Receipt Date: 20040305
  Transmission Date: 20041129
  Serious: Yes (Hospitalization, Other)
  Sender: FDA-Public Use
  Company Number: US-MERCK-0403USA00626

PATIENT
  Age: 62 Year
  Sex: Female
  Weight: 68 kg

DRUGS (13)
  1. ACETAMINOPHEN AND HYDROCODONE BITARTRATE [Concomitant]
  2. FOSAMAX [Suspect]
     Indication: OSTEOPOROSIS
     Route: 048
     Dates: start: 19980101, end: 20040201
  3. FOSAMAX [Suspect]
     Indication: OSTEOPENIA
     Route: 048
     Dates: start: 19980101, end: 20040201
  4. ASPIRIN [Concomitant]
  5. CALCIUM (UNSPECIFIED) [Concomitant]
     Dates: start: 20030101
  6. LEXAPRO [Concomitant]
  7. ESTROGENS (UNSPECIFIED) [Concomitant]
     Dates: end: 20021001
  8. DYAZIDE [Concomitant]
  9. SYNTHROID [Concomitant]
  10. PRAVACHOL [Concomitant]
  11. BEXTRA [Concomitant]
  12. VITAMIN D (UNSPECIFIED) [Concomitant]
  13. AMBIEN [Concomitant]

REACTIONS (5)
  - BONE DISORDER [None]
  - BREAST CANCER [None]
  - FEMUR FRACTURE [None]
  - FRACTURE DELAYED UNION [None]
  - PATHOLOGICAL FRACTURE [None]
